FAERS Safety Report 8932681 (Version 6)
Quarter: 2013Q1

REPORT INFORMATION
  Report Type: Spontaneous
  Country: US (occurrence: US)
  Receive Date: 20121129
  Receipt Date: 20130308
  Transmission Date: 20140127
  Serious: Yes (Hospitalization, Disabling, Other)
  Sender: FDA-Public Use
  Company Number: US-009507513-1211USA008646

PATIENT
  Sex: Female

DRUGS (10)
  1. FOSAMAX [Suspect]
     Indication: OSTEOPOROSIS
     Dosage: 70 MG, UNK
     Route: 048
     Dates: start: 20010129, end: 2009
  2. FOSAMAX [Suspect]
     Indication: POSTMENOPAUSE
  3. BONIVA [Suspect]
  4. NEXIUM [Concomitant]
     Indication: GASTROOESOPHAGEAL REFLUX DISEASE
     Dosage: UNK
     Dates: start: 1999, end: 2012
  5. PREDNISONE [Concomitant]
     Indication: SYSTEMIC LUPUS ERYTHEMATOSUS
     Dosage: UNK
     Dates: start: 199707
  6. PLAQUENIL [Concomitant]
     Indication: SYSTEMIC LUPUS ERYTHEMATOSUS
     Dosage: UNK
  7. CELEBREX [Concomitant]
     Indication: ARTHRITIS
     Dosage: UNK
  8. NORVASC [Concomitant]
     Indication: HYPERTENSION
     Dosage: UNK
     Dates: start: 1999
  9. ZOMIG [Concomitant]
     Indication: MIGRAINE
     Dosage: UNK
     Dates: start: 1998, end: 2002
  10. DEMADEX [Suspect]
     Indication: SWELLING
     Dosage: UNK

REACTIONS (41)
  - Femur fracture [Unknown]
  - Fall [Unknown]
  - Open reduction of fracture [Unknown]
  - Femur fracture [Unknown]
  - Intramedullary rod insertion [Unknown]
  - Osteomyelitis [Unknown]
  - Intramedullary rod insertion [Unknown]
  - Device failure [Unknown]
  - Open reduction of fracture [Unknown]
  - Device failure [Unknown]
  - Wound infection [Unknown]
  - Disseminated intravascular coagulation [Unknown]
  - Adverse drug reaction [Unknown]
  - Pulmonary embolism [Unknown]
  - Removal of internal fixation [Unknown]
  - Device failure [Unknown]
  - Renal failure chronic [Unknown]
  - Packed red blood cell transfusion [Unknown]
  - Internal fixation of fracture [Unknown]
  - Fracture nonunion [Unknown]
  - Asthenia [Unknown]
  - Anaemia [Unknown]
  - Atypical pneumonia [Recovering/Resolving]
  - Vision blurred [Unknown]
  - Platelet count decreased [Unknown]
  - White blood cell count decreased [Unknown]
  - Multiple fractures [Unknown]
  - Osteoporosis [Unknown]
  - Low turnover osteopathy [Unknown]
  - Anxiety [Unknown]
  - Blood cholesterol increased [Unknown]
  - Angina pectoris [Unknown]
  - Laceration [Unknown]
  - Sleep disorder [Unknown]
  - Osteoarthritis [Unknown]
  - Deep vein thrombosis [Unknown]
  - Hip arthroplasty [Unknown]
  - Post procedural haemorrhage [Unknown]
  - Packed red blood cell transfusion [Unknown]
  - Fall [Unknown]
  - Open reduction of fracture [Unknown]
